FAERS Safety Report 6010798-7 (Version None)
Quarter: 2008Q4

REPORT INFORMATION
  Report Type: 
  Country: None (occurrence: None)
  Receive Date: 20081218
  Receipt Date: 20081208
  Transmission Date: 20090506
  Serious: Yes (Other)
  Sender: FDA-Public Use
  Company Number: PHHY2008BR31282

PATIENT
  Age: 43 Year
  Sex: Female

DRUGS (3)
  1. DIOVAN [Suspect]
     Dosage: UNK
  2. ENALAPRIL MALEATE [Concomitant]
  3. RIVOTRIL [Concomitant]
     Dosage: UNK

REACTIONS (6)
  - BACK PAIN [None]
  - CHEST PAIN [None]
  - DYSPNOEA [None]
  - HEART RATE INCREASED [None]
  - HYPOAESTHESIA ORAL [None]
  - WRONG DRUG ADMINISTERED [None]
